FAERS Safety Report 5612271-4 (Version None)
Quarter: 2008Q1

REPORT INFORMATION
  Report Type: 
  Country: None (occurrence: None)
  Receive Date: 20080204
  Receipt Date: 20080121
  Transmission Date: 20080703
  Serious: Yes (Hospitalization)
  Sender: FDA-Public Use
  Company Number: JP-ELI_LILLY_AND_COMPANY-JP200801006429

PATIENT
  Sex: Male

DRUGS (4)
  1. OLANZAPINE [Suspect]
     Dosage: UNK, UNK
     Route: 064
     Dates: end: 20080117
  2. ZOLOFT [Concomitant]
     Dosage: UNK, UNK
     Route: 064
     Dates: end: 20080117
  3. WINTERMIN [Concomitant]
     Dosage: UNK, UNK
     Route: 062
     Dates: end: 20080117
  4. PROMETHAZINE [Concomitant]
     Dosage: UNK, UNK
     Route: 064
     Dates: end: 20080117

REACTIONS (2)
  - DRUG EXPOSURE DURING PREGNANCY [None]
  - DRUG WITHDRAWAL SYNDROME NEONATAL [None]
